FAERS Safety Report 16432717 (Version 1)
Quarter: 2019Q2

REPORT INFORMATION
  Report Type: Spontaneous
  Country: GR (occurrence: GR)
  Receive Date: 20190614
  Receipt Date: 20190614
  Transmission Date: 20190711
  Serious: Yes (Other)
  Sender: FDA-Public Use
  Company Number: GR-MYLANLABS-2019M1054881

PATIENT
  Age: 73 Year
  Sex: Female

DRUGS (10)
  1. DIAZOXIDE [Suspect]
     Active Substance: DIAZOXIDE
     Indication: PANCREATIC NEOPLASM
     Dosage: UNK
  2. TEMOZOLOMIDE. [Suspect]
     Active Substance: TEMOZOLOMIDE
     Indication: PANCREATIC NEOPLASM
     Dosage: UNK
     Route: 065
  3. SOMATULINE                         /01330101/ [Suspect]
     Active Substance: LANREOTIDE ACETATE
     Indication: PANCREATIC NEOPLASM
     Dosage: UNK
     Route: 065
  4. 5-FLUOROURACIL                     /00098801/ [Suspect]
     Active Substance: FLUOROURACIL
     Indication: PANCREATIC NEOPLASM
  5. EVEROLIMUS. [Concomitant]
     Active Substance: EVEROLIMUS
     Indication: PRODUCT USED FOR UNKNOWN INDICATION
     Dosage: 10 MILLIGRAM, QD
     Route: 065
  6. CAPECITABINE. [Suspect]
     Active Substance: CAPECITABINE
     Indication: PANCREATIC NEOPLASM
     Dosage: UNK
     Route: 065
  7. OXALIPLATIN. [Suspect]
     Active Substance: OXALIPLATIN
     Indication: INSULINOMA
     Dosage: UNK
  8. DIAZOXIDE [Suspect]
     Active Substance: DIAZOXIDE
     Indication: INSULINOMA
  9. OXALIPLATIN. [Suspect]
     Active Substance: OXALIPLATIN
     Indication: PANCREATIC NEOPLASM
  10. 5-FLUOROURACIL                     /00098801/ [Suspect]
     Active Substance: FLUOROURACIL
     Indication: INSULINOMA
     Dosage: UNK

REACTIONS (6)
  - Product use in unapproved indication [Unknown]
  - Hypoglycaemia [Recovered/Resolved]
  - Drug ineffective [Unknown]
  - Condition aggravated [Recovering/Resolving]
  - Malignant neoplasm progression [Recovering/Resolving]
  - Insulinoma [Recovering/Resolving]
